FAERS Safety Report 5766617-7 (Version None)
Quarter: 2008Q2

REPORT INFORMATION
  Report Type: 
  Country: None (occurrence: None)
  Receive Date: 20080609
  Receipt Date: 20080527
  Transmission Date: 20081010
  Serious: No
  Sender: FDA-Public Use
  Company Number: S08-USA-01953-01

PATIENT
  Age: 25 Year
  Sex: Female

DRUGS (3)
  1. CERVIDIL [Suspect]
     Indication: LABOUR INDUCTION
     Dosage: 10 MG ONCE VG
     Route: 067
     Dates: start: 20080501, end: 20080501
  2. CERVIDIL [Suspect]
     Indication: LABOUR INDUCTION
     Dosage: 10 MG ONCE VG
     Route: 067
     Dates: start: 20080501, end: 20080501
  3. CERVIDIL [Suspect]
     Indication: LABOUR INDUCTION
     Dosage: 10 MG ONCE VG
     Route: 067
     Dates: start: 20080501, end: 20080501

REACTIONS (5)
  - CAESAREAN SECTION [None]
  - DRUG EXPOSURE DURING PREGNANCY [None]
  - DRUG INEFFECTIVE [None]
  - FAILED INDUCTION OF LABOUR [None]
  - NO THERAPEUTIC RESPONSE [None]
